FAERS Safety Report 11423586 (Version 1)
Quarter: 2015Q3

REPORT INFORMATION
  Report Type: Spontaneous
  Country: US (occurrence: US)
  Receive Date: 20150827
  Receipt Date: 20150827
  Transmission Date: 20151125
  Serious: No
  Sender: FDA-Public Use
  Company Number: US-JNJFOC-20150421433

PATIENT
  Age: 73 Year
  Sex: Female
  Weight: 77.11 kg

DRUGS (2)
  1. MOTRIN IB [Suspect]
     Active Substance: IBUPROFEN
     Route: 048
  2. MOTRIN IB [Suspect]
     Active Substance: IBUPROFEN
     Indication: ARTHRITIS
     Dosage: 1/2 CAPLET
     Route: 048
     Dates: start: 20150424

REACTIONS (3)
  - Wrong technique in product usage process [Unknown]
  - Product label issue [Unknown]
  - Off label use [Unknown]
